FAERS Safety Report 25115340 (Version 1)
Quarter: 2025Q1

REPORT INFORMATION
  Report Type: Spontaneous
  Country: CZ (occurrence: CZ)
  Receive Date: 20250324
  Receipt Date: 20250324
  Transmission Date: 20250409
  Serious: Yes (Life-Threatening)
  Sender: JOHNSON AND JOHNSON
  Company Number: CZ-Orion Corporation ORION PHARMA-RISP2025-0003

PATIENT
  Age: 16 Year
  Sex: Male

DRUGS (6)
  1. RISPERDAL [Interacting]
     Active Substance: RISPERIDONE
     Indication: Schizophrenia
     Route: 048
  2. RISPERDAL [Interacting]
     Active Substance: RISPERIDONE
  3. RISPERDAL [Interacting]
     Active Substance: RISPERIDONE
  4. RISPERDAL [Interacting]
     Active Substance: RISPERIDONE
  5. RISPERDAL [Interacting]
     Active Substance: RISPERIDONE
  6. RISPERDAL [Interacting]
     Active Substance: RISPERIDONE

REACTIONS (4)
  - Product administered to patient of inappropriate age [Unknown]
  - Drug interaction [Unknown]
  - Ileus paralytic [Recovering/Resolving]
  - Petechiae [Recovering/Resolving]
